FAERS Safety Report 25445597 (Version 3)
Quarter: 2025Q3

REPORT INFORMATION
  Report Type: Spontaneous
  Country: EU (occurrence: EU)
  Receive Date: 20250617
  Receipt Date: 20250801
  Transmission Date: 20251020
  Serious: Yes (Death, Life-Threatening, Hospitalization, Other)
  Sender: PFIZER
  Company Number: EU-MLMSERVICE-20250530-PI526800-00270-1

PATIENT
  Age: 59 Year
  Sex: Male

DRUGS (10)
  1. METHYLPREDNISOLONE [Suspect]
     Active Substance: METHYLPREDNISOLONE
     Indication: Immunosuppressant drug therapy
  2. METHYLPREDNISOLONE SODIUM SUCCINATE [Suspect]
     Active Substance: METHYLPREDNISOLONE SODIUM SUCCINATE
     Indication: Immunosuppressant drug therapy
     Route: 042
  3. TACROLIMUS [Suspect]
     Active Substance: TACROLIMUS
     Indication: Immunosuppressant drug therapy
     Dosage: 5 MG, 2X/DAY (BID)
  4. TACROLIMUS [Suspect]
     Active Substance: TACROLIMUS
     Dosage: 3 MG, 2X/DAY (BID)
  5. MYCOPHENOLATE MOFETIL [Suspect]
     Active Substance: MYCOPHENOLATE MOFETIL
     Indication: Immunosuppressant drug therapy
     Dosage: 750 MG, 2X/DAY (TWICE DAILY (BID)
  6. MYCOPHENOLATE MOFETIL [Suspect]
     Active Substance: MYCOPHENOLATE MOFETIL
     Dosage: 500 MG, 2X/DAY (REDUCTION IN THE MMF DOSE FROM 750-500 MG BID)
  7. PREDNISOLONE [Suspect]
     Active Substance: PREDNISOLONE
     Indication: Immunosuppressant drug therapy
     Dosage: 20 MG, 1X/DAY
  8. PREDNISOLONE [Suspect]
     Active Substance: PREDNISOLONE
     Dosage: 5 MG, 1X/DAY (TAPERING TO 5 MG DAILY AFTER SIX MONTHS.)
  9. BASILIXIMAB [Suspect]
     Active Substance: BASILIXIMAB
     Indication: Immunosuppressant drug therapy
     Route: 042
  10. SULFAMETHOXAZOLE\TRIMETHOPRIM [Concomitant]
     Active Substance: SULFAMETHOXAZOLE\TRIMETHOPRIM
     Indication: Antifungal prophylaxis

REACTIONS (8)
  - Herpes simplex [Fatal]
  - Herpes simplex hepatitis [Fatal]
  - Multiple organ dysfunction syndrome [Fatal]
  - Hepatic failure [Fatal]
  - Disseminated intravascular coagulation [Unknown]
  - Confusional state [Unknown]
  - Renal impairment [Unknown]
  - Mental status changes [Unknown]
